FAERS Safety Report 11917321 (Version 4)
Quarter: 2016Q2

REPORT INFORMATION
  Report Type: Spontaneous
  Country: DE (occurrence: DE)
  Receive Date: 20160114
  Receipt Date: 20160512
  Transmission Date: 20160815
  Serious: Yes (Hospitalization, Other)
  Sender: FDA-Public Use
  Company Number: DE-AMGEN-DEUSP2016002697

PATIENT
  Age: 61 Year
  Sex: Female

DRUGS (4)
  1. PROLIA [Suspect]
     Active Substance: DENOSUMAB
     Indication: OSTEOPOROSIS
     Dosage: 60 MG, Q6MO
     Route: 058
     Dates: start: 20150608, end: 20151211
  2. PROLIA [Suspect]
     Active Substance: DENOSUMAB
     Indication: OSTEOPOROTIC FRACTURE
  3. JANUVIA [Concomitant]
     Active Substance: SITAGLIPTIN PHOSPHATE
     Indication: DIABETES MELLITUS
     Dosage: 100 MG, QD
     Route: 048
     Dates: start: 200605
  4. RAMIPRIL. [Concomitant]
     Active Substance: RAMIPRIL
     Indication: HYPERTENSION
     Dosage: 5 MG, UNK
     Route: 048
     Dates: start: 2008

REACTIONS (28)
  - Eye infection staphylococcal [Not Recovered/Not Resolved]
  - Pain in extremity [Unknown]
  - Lymphadenopathy [Recovered/Resolved]
  - Hypertension [Not Recovered/Not Resolved]
  - Mobility decreased [Unknown]
  - Eye disorder [Unknown]
  - General physical health deterioration [Recovering/Resolving]
  - Hyperventilation [Unknown]
  - Influenza like illness [Unknown]
  - Asthenia [Unknown]
  - Feeling abnormal [Recovering/Resolving]
  - Swollen tongue [Unknown]
  - Lymph node pain [Unknown]
  - Pyrexia [Recovered/Resolved]
  - Conjunctivitis [Unknown]
  - Breath sounds abnormal [Unknown]
  - Dyspnoea [Not Recovered/Not Resolved]
  - Diabetes mellitus [Unknown]
  - Heart rate increased [Unknown]
  - Headache [Unknown]
  - Rash pruritic [Unknown]
  - Diverticulitis [Unknown]
  - Epistaxis [Not Recovered/Not Resolved]
  - Pharyngeal oedema [Unknown]
  - Abdominal pain [Unknown]
  - Somnolence [Unknown]
  - Drug intolerance [Unknown]
  - Vertigo [Unknown]

NARRATIVE: CASE EVENT DATE: 2015
